FAERS Safety Report 9109035 (Version 5)
Quarter: 2013Q2

REPORT INFORMATION
  Report Type: Spontaneous
  Country: US (occurrence: US)
  Receive Date: 20130222
  Receipt Date: 20130404
  Transmission Date: 20140414
  Serious: Yes (Death, Hospitalization, Other)
  Sender: FDA-Public Use
  Company Number: US-BAXTER-2013BAX005954

PATIENT
  Age: 77 Year
  Sex: Male

DRUGS (3)
  1. DIANEAL LOW CALCIUM [Suspect]
     Indication: PERITONEAL DIALYSIS
     Route: 033
     Dates: end: 20130227
  2. DIANEAL LOW CALCIUM [Suspect]
     Indication: PERITONEAL DIALYSIS
     Route: 033
     Dates: end: 20130227
  3. EXTRANEAL [Suspect]
     Indication: PERITONEAL DIALYSIS
     Route: 033
     Dates: end: 20130227

REACTIONS (9)
  - Coronary artery disease [Fatal]
  - Myocardial infarction [Fatal]
  - Hypertension [Fatal]
  - Pneumonia [Recovering/Resolving]
  - Pulmonary congestion [Recovering/Resolving]
  - Haematemesis [Unknown]
  - Dehydration [Recovering/Resolving]
  - Peritonitis [Recovering/Resolving]
  - Hypotension [Recovering/Resolving]
